FAERS Safety Report 5752576-X (Version None)
Quarter: 2008Q2

REPORT INFORMATION
  Report Type: 
  Country: None (occurrence: None)
  Receive Date: 20080529
  Receipt Date: 20080526
  Transmission Date: 20081010
  Serious: Yes (Death, Other)
  Sender: FDA-Public Use
  Company Number: PHBS2006BR16996

PATIENT
  Age: 75 Year
  Sex: Male
  Weight: 68 kg

DRUGS (7)
  1. SLOW-K [Suspect]
     Dosage: 600 MG, UNK
     Route: 048
  2. HYGROTON [Suspect]
     Indication: DIURETIC THERAPY
  3. MONOCORDIL [Concomitant]
     Indication: CARDIAC DISORDER
     Route: 048
  4. DIGOXIN [Concomitant]
     Indication: CARDIAC DISORDER
     Dosage: 25 MG, QD
     Route: 048
  5. FUROSEMIDE [Concomitant]
     Dosage: 20 MG, BID
  6. CARVEDILATE [Concomitant]
     Indication: CARDIAC DISORDER
     Dosage: UNK, QD
     Route: 048
  7. SPIRONOLACTONE [Concomitant]
     Indication: CARDIAC DISORDER
     Dosage: 25 MG/DAY
     Route: 048

REACTIONS (2)
  - MYOCARDIAL INFARCTION [None]
  - WEIGHT DECREASED [None]
